FAERS Safety Report 17004554 (Version 1)
Quarter: 2019Q4

REPORT INFORMATION
  Report Type: Spontaneous
  Country: US (occurrence: US)
  Receive Date: 20191107
  Receipt Date: 20191107
  Transmission Date: 20200122
  Serious: No
  Sender: FDA-Public Use
  Company Number: US-PFIZER INC-2019476093

PATIENT
  Sex: Male

DRUGS (3)
  1. BOSULIF [Suspect]
     Active Substance: BOSUTINIB MONOHYDRATE
     Dosage: UNK
  2. TITANIUM DIOXIDE. [Suspect]
     Active Substance: TITANIUM DIOXIDE
     Dosage: UNK
  3. IRON OXIDES [Suspect]
     Active Substance: FERRIC OXIDE RED
     Dosage: UNK

REACTIONS (3)
  - Reaction to excipient [Unknown]
  - Nausea [Unknown]
  - Fatigue [Unknown]
